FAERS Safety Report 11093003 (Version 1)
Quarter: 2015Q2

REPORT INFORMATION
  Report Type: Spontaneous
  Country: US (occurrence: None)
  Receive Date: 20150428
  Receipt Date: 20150428
  Transmission Date: 20150821
  Serious: Yes (Other)
  Sender: FDA-Public Use
  Company Number: 2014VER00388

PATIENT
  Age: 43 Year
  Sex: Female
  Weight: 59 kg

DRUGS (14)
  1. MYORISAN [Suspect]
     Active Substance: ISOTRETINOIN
     Indication: KELOID SCAR
     Route: 048
     Dates: start: 20140701, end: 20140731
  2. CYCLOBENZAPRINE [Concomitant]
     Active Substance: CYCLOBENZAPRINE
  3. CYMBALTA [Concomitant]
     Active Substance: DULOXETINE HYDROCHLORIDE
  4. DULCOLAX [Concomitant]
     Active Substance: BISACODYL OR DOCUSATE SODIUM
  5. 12-HOUR ALLEGRA 60/120 [Concomitant]
  6. HYDROCODONE 10/325 [Concomitant]
     Active Substance: HYDROCODONE
  7. IRON [Concomitant]
     Active Substance: IRON
  8. TURMERIC [Concomitant]
     Active Substance: TURMERIC
  9. VITAMIN D [Concomitant]
     Active Substance: CHOLECALCIFEROL
  10. OMEGA 3 KRILL OIL [Concomitant]
  11. MYORISAN [Suspect]
     Active Substance: ISOTRETINOIN
     Indication: ACNE
     Route: 048
     Dates: start: 20140701, end: 20140731
  12. OXYCODONE [Concomitant]
     Active Substance: OXYCODONE
  13. B COMPLEX WITH VITAMIN C [Concomitant]
  14. MULTIVITAMIN [Concomitant]
     Active Substance: VITAMINS

REACTIONS (2)
  - Blood cholesterol increased [None]
  - Blood triglycerides increased [None]

NARRATIVE: CASE EVENT DATE: 20140731
